FAERS Safety Report 6390635-1 (Version None)
Quarter: 2009Q4

REPORT INFORMATION
  Report Type: 
  Country: None (occurrence: None)
  Receive Date: 20091006
  Receipt Date: 20090923
  Transmission Date: 20100525
  Serious: Yes (Death, Other)
  Sender: FDA-Public Use
  Company Number: US-PFIZER INC-2009196503

PATIENT
  Sex: Male

DRUGS (2)
  1. REVATIO [Suspect]
     Indication: PULMONARY ARTERIAL HYPERTENSION
     Dosage: 20 MG, 3X/DAY
     Dates: start: 20081121, end: 20090604
  2. REVATIO [Suspect]
     Indication: PULMONARY FIBROSIS

REACTIONS (2)
  - DEATH [None]
  - PLEURAL EFFUSION [None]
